FAERS Safety Report 9718352 (Version 1)
Quarter: 2013Q4

REPORT INFORMATION
  Report Type: Spontaneous
  Country: US (occurrence: US)
  Receive Date: 20131125
  Receipt Date: 20131125
  Transmission Date: 20140711
  Serious: No
  Sender: FDA-Public Use
  Company Number: US-VIVUS-2013V1000001

PATIENT
  Age: 42 Year
  Sex: Female
  Weight: 83.99 kg

DRUGS (5)
  1. QSYMIA 3.75MG/23MG [Suspect]
     Indication: WEIGHT DECREASED
     Dosage: DAILY DOSE: 1 CAPSULE,
     Route: 048
     Dates: start: 20120830, end: 201211
  2. METHYLTESTOS [Concomitant]
     Indication: HORMONE REPLACEMENT THERAPY
     Route: 048
     Dates: start: 2001
  3. SYNTHROID [Concomitant]
     Indication: HYPOTHYROIDISM
     Route: 048
     Dates: start: 2009
  4. CELEXA [Concomitant]
     Indication: ANXIETY
     Route: 048
     Dates: start: 2001
  5. METHADONE [Concomitant]
     Indication: PAIN
     Route: 048
     Dates: start: 2003

REACTIONS (1)
  - Dysgeusia [Recovering/Resolving]
